FAERS Safety Report 10635950 (Version 2)
Quarter: 2015Q1

REPORT INFORMATION
  Report Type: Spontaneous
  Country: DK (occurrence: JP)
  Receive Date: 20141205
  Receipt Date: 20150108
  Transmission Date: 20150720
  Serious: No
  Sender: FDA-Public Use
  Company Number: JP-FRI-1000072891

PATIENT
  Age: 54 Year
  Sex: Male
  Weight: 55 kg

DRUGS (7)
  1. LEXAPRO [Suspect]
     Active Substance: ESCITALOPRAM OXALATE
     Indication: DEPRESSION
     Dosage: 20 MG
     Route: 048
     Dates: start: 20141118, end: 20141120
  2. ROHYPNOL [Concomitant]
     Active Substance: FLUNITRAZEPAM
     Indication: INSOMNIA
     Dosage: 2 MG
     Route: 048
     Dates: start: 20141015
  3. DORAL [Concomitant]
     Active Substance: QUAZEPAM
     Indication: INSOMNIA
     Dosage: 30 MG
     Route: 048
     Dates: start: 20141028
  4. WYPAX [Concomitant]
     Active Substance: LORAZEPAM
     Dosage: 3 MG
     Route: 048
     Dates: start: 20141028
  5. LOXONIN [Concomitant]
     Active Substance: LOXOPROFEN SODIUM
     Indication: PAIN
     Dosage: 180 MG
     Route: 048
     Dates: start: 20141111, end: 20141118
  6. WYPAX [Concomitant]
     Active Substance: LORAZEPAM
     Indication: IRRITABILITY
     Dosage: 1.5 MG
     Route: 048
     Dates: start: 20141025, end: 20141027
  7. MUCOSTA [Concomitant]
     Active Substance: REBAMIPIDE
     Indication: PROPHYLAXIS AGAINST GASTROINTESTINAL ULCER
     Dosage: 300 MG
     Route: 048
     Dates: start: 20141111, end: 20141118

REACTIONS (1)
  - Ventricular extrasystoles [Recovered/Resolved]

NARRATIVE: CASE EVENT DATE: 20141120
